FAERS Safety Report 13633842 (Version 1)
Quarter: 2017Q2

REPORT INFORMATION
  Report Type: Spontaneous
  Country: FR (occurrence: FR)
  Receive Date: 20170609
  Receipt Date: 20170609
  Transmission Date: 20170830
  Serious: Yes (Hospitalization)
  Sender: FDA-Public Use
  Company Number: FR-ACCORD-052373

PATIENT
  Age: 61 Year
  Sex: Female

DRUGS (8)
  1. PERFALGAN [Concomitant]
     Active Substance: ACETAMINOPHEN
  2. SOLU-MEDROL [Concomitant]
     Active Substance: METHYLPREDNISOLONE SODIUM SUCCINATE
  3. ZOPHREN [Concomitant]
     Active Substance: ONDANSETRON
  4. RITUXIMAB [Suspect]
     Active Substance: RITUXIMAB
     Indication: CHRONIC LYMPHOCYTIC LEUKAEMIA
     Dates: start: 20170419
  5. BACTRIM [Concomitant]
     Active Substance: SULFAMETHOXAZOLE\TRIMETHOPRIM
  6. POLARAMINE [Concomitant]
     Active Substance: DEXCHLORPHENIRAMINE MALEATE
  7. PENTACARINAT [Concomitant]
     Active Substance: PENTAMIDINE ISETHIONATE
  8. BENDAMUSTINE ACCORD [Suspect]
     Active Substance: BENDAMUSTINE
     Indication: CHRONIC LYMPHOCYTIC LEUKAEMIA
     Dosage: 100 MG DOSED VIAL (BATCH NO: PW00475)?25 MG DOSED VIAL (BATCH NO: PT03692)
     Route: 042
     Dates: start: 20170419, end: 20170516

REACTIONS (6)
  - Vertigo [Recovered/Resolved]
  - Tachycardia [Recovered/Resolved]
  - Asthenia [Recovered/Resolved]
  - Chills [Recovered/Resolved]
  - Pyrexia [Recovered/Resolved]
  - Dermatitis exfoliative [Recovered/Resolved]

NARRATIVE: CASE EVENT DATE: 20170502
